FAERS Safety Report 21908201 (Version 1)
Quarter: 2023Q1

REPORT INFORMATION
  Report Type: Spontaneous
  Country: DE (occurrence: DE)
  Receive Date: 20230125
  Receipt Date: 20230125
  Transmission Date: 20230418
  Serious: Yes (Other)
  Sender: FDA-Public Use
  Company Number: DE-PFIZER INC-PV202300013000

PATIENT
  Age: 51 Year
  Sex: Male

DRUGS (1)
  1. PEGVISOMANT [Suspect]
     Active Substance: PEGVISOMANT
     Dosage: UNK
     Dates: start: 202205

REACTIONS (6)
  - Acromegaly [Unknown]
  - Neoplasm [Unknown]
  - Gastrointestinal neoplasm [Unknown]
  - Glycosylated haemoglobin increased [Unknown]
  - Transaminases increased [Unknown]
  - Creatinine renal clearance increased [Unknown]
